FAERS Safety Report 6709158-2 (Version None)
Quarter: 2010Q2

REPORT INFORMATION
  Report Type: 
  Country: None (occurrence: None)
  Receive Date: 20100504
  Receipt Date: 20100422
  Transmission Date: 20101027
  Serious: Yes (Hospitalization)
  Sender: FDA-Public Use
  Company Number: NL-MEDIMMUNE-MEDI-0011097

PATIENT
  Sex: Male
  Weight: 7.98 kg

DRUGS (2)
  1. SYNAGIS [Suspect]
     Route: 030
     Dates: start: 20091014, end: 20100215
  2. SYNAGIS [Suspect]
     Route: 030
     Dates: start: 20100319

REACTIONS (2)
  - DEHYDRATION [None]
  - DIARRHOEA [None]
